FAERS Safety Report 4281954-3 (Version None)
Quarter: 2004Q1

REPORT INFORMATION
  Report Type: 
  Country: None (occurrence: None)
  Receive Date: 20040128
  Receipt Date: 20040119
  Transmission Date: 20041129
  Serious: Yes (Disabling, Other)
  Sender: FDA-Public Use
  Company Number: 2003US005613

PATIENT
  Age: 37 Year
  Sex: Female
  Weight: 99.5 kg

DRUGS (14)
  1. TACROLIMUS(TACROLIMUS)CAPSULE [Suspect]
     Indication: RENAL TRANSPLANT
     Dosage: SEE IMAGE
     Route: 048
     Dates: start: 20000926, end: 20020901
  2. TACROLIMUS(TACROLIMUS)CAPSULE [Suspect]
     Indication: RENAL TRANSPLANT
     Dosage: SEE IMAGE
     Route: 048
     Dates: start: 20000926, end: 20020912
  3. CELLCEPT [Concomitant]
  4. LOPRESSOR [Concomitant]
  5. VERAPAMIL [Concomitant]
  6. CLONIDINE [Concomitant]
  7. ALTACE [Concomitant]
  8. AXID [Concomitant]
  9. BACTRIM [Concomitant]
  10. ALPHAGAN [Concomitant]
  11. EPOGEN [Concomitant]
  12. KCL (POTASSIUM CHLORIDE) [Concomitant]
  13. SODIUM BICARBONATE IN PLASTIC CONTAINER [Concomitant]
  14. MAGNESIUM OXIDE (MAGNESIUM OXIDE) [Concomitant]

REACTIONS (12)
  - BLINDNESS [None]
  - CATARACT [None]
  - EYE IRRITATION [None]
  - EYE REDNESS [None]
  - HYPERTENSION [None]
  - KERATOCONJUNCTIVITIS SICCA [None]
  - OPEN ANGLE GLAUCOMA [None]
  - OPTIC ATROPHY [None]
  - OPTIC NEURITIS [None]
  - PAPILLOEDEMA [None]
  - RETINAL HAEMORRHAGE [None]
  - VISION BLURRED [None]
